FAERS Safety Report 6964427-6 (Version None)
Quarter: 2010Q3

REPORT INFORMATION
  Report Type: 
  Country: None (occurrence: None)
  Receive Date: 20100903
  Receipt Date: 20100823
  Transmission Date: 20110219
  Serious: Yes (Other)
  Sender: FDA-Public Use
  Company Number: DK-PFIZER INC-2010045481

PATIENT
  Age: 19 Year
  Sex: Female

DRUGS (21)
  1. ZELDOX [Suspect]
     Indication: MENTAL DISORDER
     Dosage: 40 MG, 1X/DAY
     Dates: start: 20030613, end: 20030620
  2. ZELDOX [Suspect]
     Dosage: 40 MG, 2X/DAY
     Dates: start: 20030621, end: 20030807
  3. ZELDOX [Suspect]
     Dosage: 40+0+80 MG A DAY
     Dates: start: 20030807, end: 20031105
  4. ZELDOX [Suspect]
     Dosage: 80 MG, 2X/DAY
     Dates: start: 20031106, end: 20040129
  5. ZELDOX [Suspect]
     Dosage: 80 MG, 1X/DAY
     Dates: start: 20040130, end: 20040705
  6. ZELDOX [Suspect]
     Dosage: 40 MG, 1X/DAY
     Dates: start: 20040706, end: 20040101
  7. ZYPREXA [Suspect]
     Indication: MENTAL DISORDER
     Dosage: 7.5 MG, UNK
     Dates: start: 20020101, end: 20030101
  8. ZYPREXA [Suspect]
     Indication: HALLUCINATION
  9. EFFEXOR [Suspect]
     Indication: MENTAL DISORDER
     Dosage: 75 MG, 1X/DAY
     Dates: start: 20030613, end: 20030806
  10. EFFEXOR [Suspect]
     Dosage: 75 MG, 2X/DAY
     Dates: start: 20030807, end: 20031007
  11. EFFEXOR [Suspect]
     Dosage: 75+0+0+150 MG
     Dates: start: 20031008, end: 20031130
  12. EFFEXOR [Suspect]
     Dosage: 75 MG, 2X/DAY
     Dates: start: 20031201, end: 20040111
  13. EFFEXOR [Suspect]
     Dosage: 75+0+150 MG
     Dates: start: 20040112, end: 20040129
  14. EFFEXOR [Suspect]
     Dosage: 150 MG, 1X/DAY
     Dates: start: 20040612, end: 20040705
  15. EFFEXOR [Suspect]
     Dosage: 75 MG, 1X/DAY
     Dates: start: 20040706, end: 20040101
  16. PASICYN [Concomitant]
     Dosage: 2.5 MG, 1X/DAY
     Dates: start: 20030613, end: 20040101
  17. OXAZEPAM [Concomitant]
     Dosage: 7.5-15 MG AS NEEDED
     Dates: start: 20031008, end: 20040101
  18. PINEX [Concomitant]
     Dosage: 1 G, AS NEEDED
     Dates: start: 20031112, end: 20040101
  19. DESORELLE [Concomitant]
     Dosage: UNK
     Dates: start: 20031112, end: 20040101
  20. IMOVANE [Concomitant]
     Dosage: 7.5 MG, 1X/DAY
     Dates: start: 20040412, end: 20040101
  21. TRUXAL [Concomitant]
     Dosage: 25 MG, AS NEEDED
     Dates: start: 20040419, end: 20040504

REACTIONS (7)
  - AMNESIA [None]
  - ANXIETY [None]
  - DISTURBANCE IN ATTENTION [None]
  - LEARNING DISORDER [None]
  - PSYCHIATRIC SYMPTOM [None]
  - SELF ESTEEM DECREASED [None]
  - WEIGHT INCREASED [None]
